FAERS Safety Report 4431213-0 (Version None)
Quarter: 2004Q3

REPORT INFORMATION
  Report Type: 
  Country: None (occurrence: None)
  Receive Date: 20040823
  Receipt Date: 20040823
  Transmission Date: 20050211
  Serious: Yes (Disabling)
  Sender: FDA-Public Use
  Company Number: None

PATIENT
  Sex: Male
  Weight: 90.7194 kg

DRUGS (1)
  1. CELEBREX [Suspect]
     Indication: MYALGIA
     Dosage: 1  DAY  ORAL
     Route: 048
     Dates: start: 20040607, end: 20040612

REACTIONS (1)
  - VITREOUS FLOATERS [None]
